FAERS Safety Report 10278639 (Version 1)
Quarter: 2014Q3

REPORT INFORMATION
  Report Type: Spontaneous
  Country: US (occurrence: US)
  Receive Date: 20140704
  Receipt Date: 20140704
  Transmission Date: 20150326
  Serious: Yes (Hospitalization, Other)
  Sender: FDA-Public Use
  Company Number: US-AMGEN-USASP2014049546

PATIENT
  Age: 58 Year
  Sex: Male
  Weight: 63.5 kg

DRUGS (2)
  1. SENSIPAR [Suspect]
     Active Substance: CINACALCET HYDROCHLORIDE
     Indication: HYPERPARATHYROIDISM PRIMARY
     Dosage: 30 MG, TID
     Route: 065
  2. LITHIUM [Concomitant]
     Active Substance: LITHIUM CARBONATE

REACTIONS (8)
  - Renal failure acute [Unknown]
  - Abdominal pain [Unknown]
  - Cholecystitis acute [Unknown]
  - Glomerular filtration rate decreased [Unknown]
  - Sepsis [Unknown]
  - Renal failure chronic [Unknown]
  - Hypercalcaemia [Recovered/Resolved]
  - Metabolic acidosis [Unknown]
